FAERS Safety Report 5626167-5 (Version None)
Quarter: 2008Q1

REPORT INFORMATION
  Report Type: 
  Country: None (occurrence: None)
  Receive Date: 20080212
  Receipt Date: 20080212
  Transmission Date: 20080703
  Serious: Yes (Hospitalization)
  Sender: FDA-Public Use
  Company Number: None

PATIENT
  Sex: Male
  Weight: 101 kg

DRUGS (10)
  1. ZOMETA [Suspect]
     Dosage: 4 MG
  2. CALCIUM CARBONATE [Suspect]
     Dosage: 235620MG
  3. VITAMIN D [Suspect]
     Dosage: 149600 MG
  4. ADVAIR DISKUS 100/50 [Concomitant]
  5. CASODEX [Concomitant]
  6. ELIGARD [Concomitant]
  7. FLOMAX [Concomitant]
  8. IBUPROFEN [Concomitant]
  9. MULTI-VITAMIN [Concomitant]
  10. VITAMIN D [Concomitant]

REACTIONS (4)
  - DIZZINESS [None]
  - NAUSEA [None]
  - PRESYNCOPE [None]
  - VOMITING [None]
